FAERS Safety Report 4952843-3 (Version None)
Quarter: 2006Q1

REPORT INFORMATION
  Report Type: 
  Country: None (occurrence: None)
  Receive Date: 20060324
  Receipt Date: 20060314
  Transmission Date: 20060701
  Serious: Yes (Hospitalization)
  Sender: FDA-Public Use
  Company Number: US-JNJFOC-20060303901

PATIENT
  Sex: Male
  Weight: 15.88 kg

DRUGS (1)
  1. RISPERDAL [Suspect]
     Route: 048

REACTIONS (3)
  - COMA [None]
  - INCORRECT DOSE ADMINISTERED [None]
  - OVERDOSE [None]
